FAERS Safety Report 16178815 (Version 1)
Quarter: 2019Q2

REPORT INFORMATION
  Report Type: Spontaneous
  Country: US (occurrence: US)
  Receive Date: 20190410
  Receipt Date: 20190410
  Transmission Date: 20190711
  Serious: Yes (Hospitalization)
  Sender: FDA-Public Use
  Company Number: US-VERTEX PHARMACEUTICALS-2019-002666

PATIENT
  Sex: Female

DRUGS (2)
  1. ORKAMBI [Suspect]
     Active Substance: IVACAFTOR\LUMACAFTOR
     Indication: CYSTIC FIBROSIS
     Dosage: 400/250 MG, BID
     Route: 048
     Dates: start: 20180326
  2. CAYSTON [Concomitant]
     Active Substance: AZTREONAM

REACTIONS (6)
  - Pulmonary function test decreased [Unknown]
  - Fatigue [Unknown]
  - Pseudomonas infection [Unknown]
  - Abdominal pain upper [Unknown]
  - Bronchial secretion retention [Unknown]
  - Oropharyngeal pain [Unknown]

NARRATIVE: CASE EVENT DATE: 2018
